FAERS Safety Report 7821675-0 (Version None)
Quarter: 2011Q4

REPORT INFORMATION
  Report Type: 
  Country: None (occurrence: None)
  Receive Date: 20111018
  Receipt Date: 20111011
  Transmission Date: 20120403
  Serious: Yes (Hospitalization)
  Sender: FDA-Public Use
  Company Number: DE-PFIZER INC-2011242602

PATIENT
  Age: 52 Year
  Sex: Female
  Weight: 91 kg

DRUGS (19)
  1. HYDROCHLOROTHIAZIDE [Concomitant]
     Dosage: UNK
     Dates: start: 20110614
  2. FERROUS SULFATE TAB [Concomitant]
     Dosage: UNK
     Dates: start: 20110815
  3. MEGACILLIN [Concomitant]
     Dosage: UNK
     Dates: start: 20110913
  4. SILDENAFIL CITRATE [Suspect]
     Indication: PULMONARY HYPERTENSION
     Dosage: 60 MG, UNK
     Route: 048
     Dates: start: 20110218
  5. ALDACTONE [Concomitant]
     Dosage: UNK
     Dates: start: 20110301
  6. CONCOR [Concomitant]
     Dosage: UNK
     Dates: start: 20110617
  7. TORSEMIDE [Concomitant]
     Dosage: UNK
     Dates: start: 20110201
  8. KALINOR [Concomitant]
     Dosage: UNK
     Dates: start: 20110614, end: 20110618
  9. PANTOPRAZOLE SODIUM [Concomitant]
     Dosage: UNK
     Dates: start: 20110618
  10. DIPROGENTA [Concomitant]
     Dosage: UNK
     Dates: start: 20110914
  11. BLINDED THERAPY [Suspect]
     Indication: PULMONARY ARTERIAL HYPERTENSION
     Dosage: UNK
     Route: 048
     Dates: start: 20110526, end: 20110830
  12. LEVOTHYROXINE SODIUM [Concomitant]
     Dosage: UNK
     Dates: start: 19950101
  13. MARCUMAR [Concomitant]
     Dosage: UNK
     Dates: start: 20110201
  14. PARACODIN BITARTRATE TAB [Concomitant]
     Dosage: UNK
     Dates: start: 20100801
  15. RIOCIGUAT [Suspect]
     Indication: PULMONARY ARTERIAL HYPERTENSION
     Dosage: UNK
     Route: 048
     Dates: start: 20110831
  16. METOPROLOL [Concomitant]
     Dosage: UNK
     Dates: start: 20020101, end: 20110617
  17. EZETIMIBE [Concomitant]
     Dosage: UNK
     Dates: start: 20050101
  18. CANDESARTAN CILEXETIL [Concomitant]
     Dosage: UNK
     Dates: start: 20050101, end: 20110530
  19. LASIX [Concomitant]
     Dosage: UNK
     Dates: start: 20110621, end: 20110621

REACTIONS (1)
  - CONSTIPATION [None]
